FAERS Safety Report 21955861 (Version 1)
Quarter: 2023Q1

REPORT INFORMATION
  Report Type: Spontaneous
  Country: CN (occurrence: CN)
  Receive Date: 20230206
  Receipt Date: 20230206
  Transmission Date: 20230417
  Serious: Yes (Other)
  Sender: FDA-Public Use
  Company Number: None

PATIENT
  Age: 35 Year
  Sex: Female
  Weight: 56 kg

DRUGS (8)
  1. CYCLOPHOSPHAMIDE [Suspect]
     Active Substance: CYCLOPHOSPHAMIDE
     Indication: Invasive breast carcinoma
     Dosage: 720 MG, QD, DILUTED WITH 100 ML OF 0.9% SODIUM CHLORIDE, FOURTH CHEMOTHERAPY OF TC REGIMEN
     Route: 041
     Dates: start: 20230105, end: 20230105
  2. CYCLOPHOSPHAMIDE [Suspect]
     Active Substance: CYCLOPHOSPHAMIDE
     Indication: Chemotherapy
  3. SODIUM CHLORIDE [Suspect]
     Active Substance: SODIUM CHLORIDE
     Indication: Medication dilution
     Dosage: AT 08:26, (0.9%), 100 ML, QD, USED TO DILUENT WITH DOCETAXEL 20 MG, FOURTH CHEMOTHERAPY OF TC REGIME
     Route: 041
     Dates: start: 20230105, end: 20230105
  4. DOCETAXEL [Suspect]
     Active Substance: DOCETAXEL
     Indication: Invasive breast carcinoma
     Dosage: (AT 08:26), 20 MG, QD, DILUTED WITH 100 ML OF 0.9% SODIUM CHLORIDE, FOURTH CHEMOTHERAPY OF TC REGIME
     Route: 041
     Dates: start: 20230105, end: 20230105
  5. DOCETAXEL [Suspect]
     Active Substance: DOCETAXEL
     Indication: Chemotherapy
     Dosage: 70 MG, QD, DILUTED WITH 250 ML OF 0.9% SODIUM CHLORIDE, FOURTH CHEMOTHERAPY OF TC REGIMEN
     Route: 041
     Dates: start: 20230105, end: 20230105
  6. SODIUM CHLORIDE [Suspect]
     Active Substance: SODIUM CHLORIDE
     Indication: Invasive breast carcinoma
     Dosage: 100 ML, QD, USED TO DILUTE 720 MG OF CYCLOPHOSPHAMIDE, FOURTH CHEMOTHERAPY OF TC REGIMEN
     Route: 041
     Dates: start: 20230105, end: 20230105
  7. SODIUM CHLORIDE [Suspect]
     Active Substance: SODIUM CHLORIDE
     Indication: Chemotherapy
     Dosage: 250 ML, QD, USED TO DILUTE 70 MG OF DOCETAXEL, FOURTH CHEMOTHERAPY OF TC REGIMEN
     Route: 041
     Dates: start: 20230105, end: 20230105
  8. GRANULOCYTE COLONY-STIMULATING FACTOR NOS [Concomitant]
     Active Substance: GRANULOCYTE COLONY-STIMULATING FACTOR NOS
     Indication: Prophylaxis
     Dosage: 150 UG
     Route: 058
     Dates: start: 20230108

REACTIONS (2)
  - White blood cell count decreased [Recovering/Resolving]
  - Neutrophil count decreased [Recovering/Resolving]

NARRATIVE: CASE EVENT DATE: 20230111
